FAERS Safety Report 6594773-X (Version None)
Quarter: 2010Q1

REPORT INFORMATION
  Report Type: 
  Country: None (occurrence: None)
  Receive Date: 20100222
  Receipt Date: 20100208
  Transmission Date: 20100710
  Serious: Yes (Other)
  Sender: FDA-Public Use
  Company Number: GB-MYLANLABS-2010S1002115

PATIENT
  Age: 46 Year
  Sex: Male

DRUGS (4)
  1. METOPROLOL TARTRATE [Suspect]
     Indication: ANGINA UNSTABLE
  2. METOPROLOL TARTRATE [Interacting]
  3. VERAPAMIL [Interacting]
     Indication: ANGINA UNSTABLE
  4. GLYCERYL TRINITRATE [Concomitant]
     Indication: ANGINA UNSTABLE

REACTIONS (2)
  - ATRIOVENTRICULAR BLOCK SECOND DEGREE [None]
  - DRUG INTERACTION [None]
